FAERS Safety Report 7326359-3 (Version None)
Quarter: 2011Q1

REPORT INFORMATION
  Report Type: 
  Country: None (occurrence: None)
  Receive Date: 20110222
  Receipt Date: 20110207
  Transmission Date: 20110831
  Serious: Yes (Other)
  Sender: FDA-Public Use
  Company Number: US-1184989

PATIENT
  Age: 71 Year
  Sex: Female
  Weight: 74.8435 kg

DRUGS (4)
  1. CIPROFLOXACIN [Concomitant]
  2. FLURBIPROFEN [Concomitant]
  3. MIOSTAT [Suspect]
     Dosage: (OPTHALMIC)
  4. PREDNISOLONE ACETATE [Concomitant]

REACTIONS (2)
  - POST PROCEDURAL COMPLICATION [None]
  - INTRAOCULAR PRESSURE INCREASED [None]
